FAERS Safety Report 12277253 (Version 2)
Quarter: 2016Q2

REPORT INFORMATION
  Report Type: Spontaneous
  Country: US (occurrence: US)
  Receive Date: 20160418
  Receipt Date: 20160420
  Transmission Date: 20160815
  Serious: No
  Sender: FDA-Public Use
  Company Number: US-TEVA-639893USA

PATIENT
  Age: 26 Year
  Sex: Female

DRUGS (1)
  1. ZECUITY [Suspect]
     Active Substance: SUMATRIPTAN SUCCINATE
     Route: 062
     Dates: start: 201512

REACTIONS (4)
  - Application site rash [Recovered/Resolved]
  - Application site warmth [Unknown]
  - Application site discolouration [Recovering/Resolving]
  - Skin texture abnormal [Recovering/Resolving]

NARRATIVE: CASE EVENT DATE: 201512
